FAERS Safety Report 19905545 (Version 2)
Quarter: 2021Q4

REPORT INFORMATION
  Report Type: Spontaneous
  Country: SI (occurrence: SI)
  Receive Date: 20211001
  Receipt Date: 20211126
  Transmission Date: 20220303
  Serious: Yes (Other)
  Sender: FDA-Public Use
  Company Number: SI-BAYER-2021A217283

PATIENT

DRUGS (10)
  1. EYLEA [Suspect]
     Active Substance: AFLIBERCEPT
     Indication: Retinal vein occlusion
     Dosage: UNK
     Route: 031
     Dates: start: 2015, end: 2021
  2. EYLEA [Suspect]
     Active Substance: AFLIBERCEPT
     Dosage: UNK, 8 INJECTIONS
     Route: 031
     Dates: start: 2015
  3. EYLEA [Suspect]
     Active Substance: AFLIBERCEPT
     Dosage: UNK, 9 INJECTIONS
     Route: 031
     Dates: start: 2016
  4. EYLEA [Suspect]
     Active Substance: AFLIBERCEPT
     Dosage: UNK, 10 INJECTIONS
     Route: 031
     Dates: start: 2017
  5. EYLEA [Suspect]
     Active Substance: AFLIBERCEPT
     Dosage: UNK, 11 INJECTIONS
     Route: 031
     Dates: start: 2018
  6. EYLEA [Suspect]
     Active Substance: AFLIBERCEPT
     Dosage: UNK, 11 INJECTIONS
     Route: 031
     Dates: start: 2018
  7. EYLEA [Suspect]
     Active Substance: AFLIBERCEPT
     Dosage: UNK, 11 INJECTIONS
     Route: 031
     Dates: start: 2019
  8. EYLEA [Suspect]
     Active Substance: AFLIBERCEPT
     Dosage: UNK, 11 INJECTIONS
     Route: 031
     Dates: start: 2020
  9. EYLEA [Suspect]
     Active Substance: AFLIBERCEPT
     Dosage: UNK, 7 INJECTIONS
     Route: 031
     Dates: start: 2021
  10. RANIBIZUMAB [Concomitant]
     Active Substance: RANIBIZUMAB
     Indication: Product used for unknown indication
     Dosage: UNK, RECEIVED 4 RANIBIZUMAB ADMINISTRATIONS, ONE EVERY 4-5 WEEKS
     Dates: start: 2020

REACTIONS (1)
  - Macular oedema [Unknown]

NARRATIVE: CASE EVENT DATE: 20200101
